FAERS Safety Report 9683766 (Version 2)
Quarter: 2013Q4

REPORT INFORMATION
  Report Type: Spontaneous
  Country: US (occurrence: US)
  Receive Date: 20131112
  Receipt Date: 20131121
  Transmission Date: 20140711
  Serious: Yes (Other)
  Sender: FDA-Public Use
  Company Number: US-BAXTER-2013BAX043946

PATIENT
  Sex: Male

DRUGS (2)
  1. DIANEAL LOW CALCIUM [Suspect]
     Indication: PERITONEAL DIALYSIS
     Route: 033
     Dates: start: 20121029, end: 20131022
  2. DIANEAL LOW CALCIUM [Suspect]
     Route: 033
     Dates: start: 201310

REACTIONS (2)
  - Hernia [Recovered/Resolved]
  - Condition aggravated [Recovered/Resolved]
